FAERS Safety Report 24304631 (Version 2)
Quarter: 2024Q3

REPORT INFORMATION
  Report Type: Report from Study
  Country: CA (occurrence: CA)
  Receive Date: 20240910
  Receipt Date: 20240924
  Transmission Date: 20241017
  Serious: Yes (Life-Threatening, Other)
  Sender: HLS THERAPEUTICS
  Company Number: CA-HLS-202402194

PATIENT
  Sex: Male

DRUGS (1)
  1. CLOZARIL [Suspect]
     Active Substance: CLOZAPINE
     Indication: Product used for unknown indication
     Route: 048
     Dates: start: 20151105

REACTIONS (7)
  - Hypogammaglobulinaemia [Unknown]
  - Chronic lymphocytic leukaemia [Unknown]
  - Chronic obstructive pulmonary disease [Unknown]
  - Diabetes mellitus [Unknown]
  - Chronic kidney disease [Unknown]
  - Neutrophil count decreased [Unknown]
  - Osteoarthritis [Unknown]
